FAERS Safety Report 16183075 (Version 1)
Quarter: 2019Q2

REPORT INFORMATION
  Report Type: Spontaneous
  Country: GB (occurrence: GB)
  Receive Date: 20190411
  Receipt Date: 20190411
  Transmission Date: 20190711
  Serious: Yes (Other)
  Sender: FDA-Public Use
  Company Number: GB-ACCORD-120028

PATIENT
  Sex: Female

DRUGS (1)
  1. SERTRALINE [Suspect]
     Active Substance: SERTRALINE HYDROCHLORIDE
     Indication: DEPRESSION
     Dosage: ALSO RECEIVED 200 MG FROM JUL-2018 TO 2018 FOR ANXIETY DEPRESSION BY ORAL ROUTE.
     Route: 048
     Dates: start: 2016, end: 201807

REACTIONS (2)
  - Pneumothorax [Recovering/Resolving]
  - Hypersensitivity pneumonitis [Recovering/Resolving]

NARRATIVE: CASE EVENT DATE: 2016
